FAERS Safety Report 17483502 (Version 2)
Quarter: 2020Q1

REPORT INFORMATION
  Report Type: Spontaneous
  Country: IL (occurrence: IL)
  Receive Date: 20200302
  Receipt Date: 20200306
  Transmission Date: 20200409
  Serious: Yes (Life-Threatening, Hospitalization, Other)
  Sender: FDA-Public Use
  Company Number: IL-BRISTOL-MYERS SQUIBB COMPANY-BMS-2020-016336

PATIENT
  Age: 73 Year
  Sex: Male

DRUGS (1)
  1. ELIQUIS [Suspect]
     Active Substance: APIXABAN
     Indication: CEREBROVASCULAR ACCIDENT PROPHYLAXIS
     Dosage: UNK
     Route: 065

REACTIONS (9)
  - Fall [Unknown]
  - Livedo reticularis [Unknown]
  - Shock [Unknown]
  - Cardiac arrest [Unknown]
  - Seizure [Unknown]
  - General physical health deterioration [Unknown]
  - Haemorrhage [Unknown]
  - Oxygen saturation decreased [Unknown]
  - Pyrexia [Unknown]
